FAERS Safety Report 4517495-5 (Version None)
Quarter: 2004Q4

REPORT INFORMATION
  Report Type: 
  Country: None (occurrence: None)
  Receive Date: 20041130
  Receipt Date: 20041116
  Transmission Date: 20050328
  Serious: Yes (Death, Other)
  Sender: FDA-Public Use
  Company Number: USA040874829

PATIENT
  Age: 8 Year
  Sex: Male
  Weight: 34 kg

DRUGS (1)
  1. STRATTERA [Suspect]
     Indication: ATTENTION DEFICIT/HYPERACTIVITY DISORDER
     Dosage: 40 MG/1 DAY
     Dates: start: 20040601

REACTIONS (12)
  - ASPIRATION [None]
  - BRONCHITIS CHRONIC [None]
  - CARDIO-RESPIRATORY ARREST [None]
  - DYSPNOEA [None]
  - FAECAL INCONTINENCE [None]
  - FOOD ALLERGY [None]
  - LUNG INFECTION [None]
  - PNEUMONIA [None]
  - SEPSIS [None]
  - SUDDEN DEATH [None]
  - URINARY INCONTINENCE [None]
  - VIRAL INFECTION [None]
